FAERS Safety Report 19768723 (Version 2)
Quarter: 2021Q4

REPORT INFORMATION
  Report Type: Spontaneous
  Country: US (occurrence: US)
  Receive Date: 20210830
  Receipt Date: 20211111
  Transmission Date: 20220303
  Serious: Yes (Hospitalization, Other)
  Sender: FDA-Public Use
  Company Number: US-BOEHRINGERINGELHEIM-2021-BI-123261

PATIENT
  Sex: Female

DRUGS (1)
  1. COMBIVENT [Suspect]
     Active Substance: ALBUTEROL SULFATE\IPRATROPIUM BROMIDE
     Indication: Product used for unknown indication
     Dosage: COMBIVENT RESPIMAT 20MCG/100MCG
     Route: 055

REACTIONS (4)
  - Retinal tear [Recovered/Resolved]
  - Cataract [Not Recovered/Not Resolved]
  - Product packaging issue [Unknown]
  - Product physical issue [Unknown]
